FAERS Safety Report 25285224 (Version 1)
Quarter: 2025Q2

REPORT INFORMATION
  Report Type: Report from Study
  Country: US (occurrence: US)
  Receive Date: 20250509
  Receipt Date: 20250509
  Transmission Date: 20250716
  Serious: Yes (Death)
  Sender: ABBVIE
  Company Number: US-ABBVIE-6271493

PATIENT
  Age: 87 Year
  Sex: Male

DRUGS (11)
  1. VENETOCLAX [Suspect]
     Active Substance: VENETOCLAX
     Indication: Chronic lymphocytic leukaemia
     Dosage: STRENGTH: 10 MG?TAKE 1 TABLET (10 MG TOTAL) BY MOUTH DAILY ON DAYS 1 THROUGH 7?LAST ADMIN DATE: F...
     Route: 048
     Dates: start: 20230216
  2. VENETOCLAX [Suspect]
     Active Substance: VENETOCLAX
     Indication: Chronic lymphocytic leukaemia
     Dosage: STRENGTH: 10 MG?TAKE 2 TABLETS (20 MG TOTAL) BY MOUTH DAILY ON DAYS 8 THROUGH 14.?LAST ADMIN DATE...
     Route: 048
     Dates: start: 202302
  3. VENETOCLAX [Suspect]
     Active Substance: VENETOCLAX
     Indication: Chronic lymphocytic leukaemia
     Dosage: STRENGTH: 50 MG?TAKE 1 TABLET (50 MG TOTAL) BY MOUTH DAILY ON DAYS 15 THROUGH 21
     Route: 048
     Dates: start: 2023, end: 2023
  4. VENETOCLAX [Suspect]
     Active Substance: VENETOCLAX
     Indication: Chronic lymphocytic leukaemia
     Dosage: STRENGTH: 100 MG?TAKE 1 TABLET (100 MG TOTAL) BY MOUTH DAILY STARTING ON DAY 22.
     Route: 048
     Dates: start: 2023, end: 2023
  5. TYLENOL [Concomitant]
     Active Substance: ACETAMINOPHEN
     Indication: Product used for unknown indication
  6. PROVENTIL HFA [Concomitant]
     Active Substance: ALBUTEROL SULFATE
     Indication: Product used for unknown indication
  7. VENTOLIN HFA [Concomitant]
     Active Substance: ALBUTEROL SULFATE
     Indication: Product used for unknown indication
  8. PROAIR HFA [Concomitant]
     Active Substance: ALBUTEROL SULFATE
     Indication: Product used for unknown indication
  9. GLEEVEC [Concomitant]
     Active Substance: IMATINIB MESYLATE
     Indication: Product used for unknown indication
  10. DUONEB [Concomitant]
     Active Substance: ALBUTEROL SULFATE\IPRATROPIUM BROMIDE
     Indication: Product used for unknown indication
  11. LEVAQUIN [Concomitant]
     Active Substance: LEVOFLOXACIN
     Indication: Product used for unknown indication

REACTIONS (1)
  - Death [Fatal]

NARRATIVE: CASE EVENT DATE: 20230603
